FAERS Safety Report 18277599 (Version 1)
Quarter: 2020Q3

REPORT INFORMATION
  Report Type: Spontaneous
  Country: JP (occurrence: JP)
  Receive Date: 20200917
  Receipt Date: 20200917
  Transmission Date: 20201103
  Serious: Yes (Other)
  Sender: FDA-Public Use
  Company Number: JP-PFIZER INC-2020358129

PATIENT
  Age: 74 Year
  Sex: Female

DRUGS (2)
  1. BAVENCIO [Concomitant]
     Active Substance: AVELUMAB
  2. INLYTA [Suspect]
     Active Substance: AXITINIB

REACTIONS (7)
  - Stomatitis [Unknown]
  - Palmar-plantar erythrodysaesthesia syndrome [Unknown]
  - Decreased appetite [Unknown]
  - Gingival bleeding [Unknown]
  - Hypothyroidism [Unknown]
  - Adrenal insufficiency [Unknown]
  - Malaise [Unknown]
